FAERS Safety Report 7004799-X (Version None)
Quarter: 2010Q3

REPORT INFORMATION
  Report Type: 
  Country: None (occurrence: None)
  Receive Date: 20100921
  Receipt Date: 20100901
  Transmission Date: 20110219
  Serious: Yes (Hospitalization, Other)
  Sender: FDA-Public Use
  Company Number: US-ASTRAZENECA-2009SE22827

PATIENT
  Age: 33 Year
  Sex: Female
  Weight: 122.5 kg

DRUGS (11)
  1. SEROQUEL [Suspect]
     Indication: SCHIZOAFFECTIVE DISORDER
     Route: 048
     Dates: start: 20010101, end: 20030101
  2. HALDOL [Concomitant]
     Dates: start: 20010101
  3. RISPERDAL [Concomitant]
     Dates: start: 20010101
  4. ZYPREXA [Concomitant]
     Dates: start: 20010101
  5. SYMBYAX [Concomitant]
     Dates: start: 20010101
  6. DEPACOTE [Concomitant]
     Dates: start: 20010101
  7. DEPACOTE [Concomitant]
     Dosage: 500 MG IN THE MORNING AND 1000 MG QHS
     Dates: start: 20031101
  8. LITHIUM [Concomitant]
     Dates: start: 20010101
  9. ALDACTONE [Concomitant]
     Dates: start: 20031121
  10. CELEXA [Concomitant]
     Dates: start: 20031121
  11. PROPRANOLOL [Concomitant]
     Dates: start: 20031121

REACTIONS (10)
  - BLOOD CHOLESTEROL INCREASED [None]
  - BLOOD TRIGLYCERIDES INCREASED [None]
  - CARDIAC FAILURE CONGESTIVE [None]
  - EMOTIONAL DISORDER [None]
  - HYPERINSULINAEMIA [None]
  - HYPOGLYCAEMIA [None]
  - MULTIPLE DRUG OVERDOSE INTENTIONAL [None]
  - OBESITY [None]
  - OVERDOSE [None]
  - TYPE 2 DIABETES MELLITUS [None]
